FAERS Safety Report 20911211 (Version 1)
Quarter: 2022Q2

REPORT INFORMATION
  Report Type: Spontaneous
  Country: SE (occurrence: SE)
  Receive Date: 20220603
  Receipt Date: 20220603
  Transmission Date: 20220721
  Serious: Yes (Hospitalization)
  Sender: FDA-Public Use
  Company Number: None

PATIENT
  Age: 69 Year
  Sex: Female

DRUGS (15)
  1. LEVETIRACETAM [Suspect]
     Active Substance: LEVETIRACETAM
     Indication: Post stroke epilepsy
     Dosage: UNIT DOSE : 2000 MG , FREQUENCY TIME : 1 DAY , DURATION : 11 DAYS
     Route: 048
     Dates: start: 20220420, end: 20220501
  2. ESCITALOPRAM [Concomitant]
     Active Substance: ESCITALOPRAM OXALATE
     Dosage: 20 MG , FREQUENCY TIME : 1 DAY
  3. METOPROLOL [Concomitant]
     Active Substance: METOPROLOL
     Dosage: 200 MG , FREQUENCY TIME : 1 DAY
  4. ATORVASTATIN [Concomitant]
     Active Substance: ATORVASTATIN
     Dosage: 80 MG , FREQUENCY TIME : 1 DAY
  5. ACETAMINOPHEN [Concomitant]
     Active Substance: ACETAMINOPHEN
     Dosage: 2 X 0-3 , UNIT DOSE : 3000 MG , FREQUENCY TIME : 1 DAY
  6. AMLODIPINE [Concomitant]
     Active Substance: AMLODIPINE BESYLATE
     Dosage: 10 MG ,  FREQUENCY TIME : 1 DAY
  7. CYANOCOBALAMIN [Concomitant]
     Active Substance: CYANOCOBALAMIN
     Dosage: 1 MG ,  FREQUENCY TIME : 1 DAY
  8. BRICANYL [Concomitant]
     Active Substance: TERBUTALINE SULFATE
     Dosage: STRENGTH : 0.5 MG / DOSE , UNIT DOSE : 0.5 MG ,  FREQUENCY TIME : 1 AS REQUIRED
  9. ECONAZOLE NITRATE [Concomitant]
     Active Substance: ECONAZOLE NITRATE
  10. UREA [Concomitant]
     Active Substance: UREA
  11. LOPERAMIDE [Concomitant]
     Active Substance: LOPERAMIDE
  12. WARFARIN SODIUM [Concomitant]
     Active Substance: WARFARIN SODIUM
  13. HERBALS\KARAYA GUM [Concomitant]
     Active Substance: HERBALS\KARAYA GUM
     Dosage: FREQUENCY TIME : 1 DAY
  14. OXAZEPAM [Concomitant]
     Active Substance: OXAZEPAM
     Dosage: 1 TABLET IF NEEDED, MAX 3 TABLETS / DAY. , FREQUENCY TIME : 1 AS REQUIRED , UNIT DOSE : 15 MG , STRE
  15. FERROUS SULFATE [Concomitant]
     Active Substance: FERROUS SULFATE
     Dosage: DUROFERON 100 MG FE2+ DEPOTTABLETT , STRENGTH : 100 MG , UNIT DOSE : 200 MG , FREQUENCY TIME : 1 DAY

REACTIONS (2)
  - Confusional state [Recovered/Resolved]
  - Hallucination [Recovered/Resolved]

NARRATIVE: CASE EVENT DATE: 20220430
